FAERS Safety Report 8803652 (Version 1)
Quarter: 2012Q4

REPORT INFORMATION
  Report Type: 
  Country: US (occurrence: US)
  Receive Date: 20120924
  Receipt Date: 20120924
  Transmission Date: 20130627
  Serious: Yes (Other)
  Sender: FDA-Public Use
  Company Number: US-ACCORD-014619

PATIENT
  Age: 14 Year
  Sex: Female

DRUGS (8)
  1. PACLITAXEL [Suspect]
     Indication: GERMINOMA
     Dosage: two cycles
  2. GEMCITABINE [Concomitant]
     Indication: GERMINOMA
     Dosage: two cycles
  3. OXALIPLATIN [Concomitant]
     Indication: GERMINOMA
     Dosage: two cycles
  4. CORTEF [Concomitant]
  5. SYNTHROID [Concomitant]
  6. DESMOPRESSIN [Concomitant]
  7. NYSTATIN [Concomitant]
  8. BACTRIM [Concomitant]

REACTIONS (6)
  - Encephalopathy [Recovered/Resolved]
  - Pancytopenia [Unknown]
  - Off label use [Unknown]
  - Acidosis [None]
  - Toxicity to various agents [None]
  - Bone marrow failure [None]
